FAERS Safety Report 4899041-X (Version None)
Quarter: 2006Q1

REPORT INFORMATION
  Report Type: 
  Country: None (occurrence: None)
  Receive Date: 20060202
  Receipt Date: 20051221
  Transmission Date: 20060701
  Serious: Yes (Hospitalization, Other)
  Sender: FDA-Public Use
  Company Number: JP-BRISTOL-MYERS SQUIBB COMPANY-13254800

PATIENT
  Age: 60 Year
  Sex: Female

DRUGS (4)
  1. SINEMET [Suspect]
     Indication: PARKINSON'S DISEASE
     Route: 048
     Dates: start: 19980501, end: 20040419
  2. ARTANE [Concomitant]
     Dates: start: 20021008
  3. PERGOLIDE MESYLATE [Concomitant]
     Dates: start: 20020314
  4. DOMIN [Concomitant]
     Dates: start: 20031218

REACTIONS (1)
  - MUSCLE NECROSIS [None]
